FAERS Safety Report 19796076 (Version 1)
Quarter: 2021Q3

REPORT INFORMATION
  Report Type: Other
  Country: IT (occurrence: IT)
  Receive Date: 20210906
  Receipt Date: 20210906
  Transmission Date: 20211014
  Serious: Yes (Death, Life-Threatening)
  Sender: FDA-Public Use
  Company Number: IT-NOSTRUM LABORATORIES, INC.-2118029

PATIENT
  Age: 32 Month
  Sex: Male
  Weight: 10 kg

DRUGS (1)
  1. METHADONE HYDROCHLORIDE. [Suspect]
     Active Substance: METHADONE HYDROCHLORIDE
     Indication: ACCIDENTAL OVERDOSE
     Route: 065

REACTIONS (2)
  - Death [Fatal]
  - Accidental overdose [Fatal]
